FAERS Safety Report 6488805-7 (Version None)
Quarter: 2009Q4

REPORT INFORMATION
  Report Type: 
  Country: None (occurrence: None)
  Receive Date: 20091210
  Receipt Date: 20091210
  Transmission Date: 20100525
  Serious: Yes (Hospitalization)
  Sender: FDA-Public Use
  Company Number: FR-PFIZER INC-2009169257

PATIENT
  Age: 54 Year
  Sex: Male

DRUGS (1)
  1. LYRICA [Suspect]
     Dosage: 75 MG, 2X/DAY
     Dates: start: 20090101

REACTIONS (2)
  - HYPERTENSION [None]
  - PULMONARY OEDEMA [None]
